FAERS Safety Report 22702080 (Version 4)
Quarter: 2023Q4

REPORT INFORMATION
  Report Type: Spontaneous
  Country: US (occurrence: US)
  Receive Date: 20230713
  Receipt Date: 20231214
  Transmission Date: 20240110
  Serious: Yes (Disabling)
  Sender: FDA-Public Use
  Company Number: US-SA-SAC20230710000793

PATIENT
  Age: 63 Year
  Sex: Female

DRUGS (6)
  1. DUPIXENT [Suspect]
     Active Substance: DUPILUMAB
     Indication: Dermatitis atopic
     Dosage: 600 MG, 1X
     Route: 058
     Dates: start: 20230703, end: 20230703
  2. DUPIXENT [Suspect]
     Active Substance: DUPILUMAB
     Indication: Eczema
     Dosage: 300 MG, QOW
     Route: 058
     Dates: start: 202307
  3. HYDROCORTISONE [Concomitant]
     Active Substance: HYDROCORTISONE
  4. TYLENOL [Concomitant]
     Active Substance: ACETAMINOPHEN
  5. TRIAMCINOLONE [Concomitant]
     Active Substance: TRIAMCINOLONE
  6. LEVOTHYROXINE SODIUM [Concomitant]
     Active Substance: LEVOTHYROXINE SODIUM

REACTIONS (19)
  - Loss of personal independence in daily activities [Unknown]
  - Mood altered [Unknown]
  - Skin laceration [Unknown]
  - Insomnia [Unknown]
  - Eczema eyelids [Not Recovered/Not Resolved]
  - Headache [Unknown]
  - Impaired quality of life [Unknown]
  - Erythema of eyelid [Unknown]
  - Feeling abnormal [Unknown]
  - Eczema [Unknown]
  - Pruritus [Unknown]
  - Dry skin [Unknown]
  - Pain of skin [Unknown]
  - Rash erythematous [Not Recovered/Not Resolved]
  - Skin exfoliation [Unknown]
  - Injection site pain [Unknown]
  - Eye pruritus [Unknown]
  - Dry eye [Unknown]
  - Drug effect less than expected [Unknown]

NARRATIVE: CASE EVENT DATE: 20230101
